FAERS Safety Report 5019445-4 (Version None)
Quarter: 2006Q2

REPORT INFORMATION
  Report Type: 
  Country: None (occurrence: None)
  Receive Date: 20060601
  Receipt Date: 20060523
  Transmission Date: 20061013
  Serious: Yes (Hospitalization)
  Sender: FDA-Public Use
  Company Number: 0605-284

PATIENT
  Age: 1 Day
  Sex: Male
  Weight: 4 kg

DRUGS (1)
  1. CUROSURF [Suspect]
     Dosage: 480MG, INTRATRACHEAL
     Route: 039
     Dates: start: 20060410

REACTIONS (3)
  - PNEUMONIA [None]
  - PULMONARY HYPERTENSION [None]
  - RESPIRATORY DISORDER [None]
